FAERS Safety Report 5522475-7 (Version None)
Quarter: 2007Q4

REPORT INFORMATION
  Report Type: 
  Country: None (occurrence: None)
  Receive Date: 20071120
  Receipt Date: 20071113
  Transmission Date: 20080405
  Serious: Yes (Hospitalization)
  Sender: FDA-Public Use
  Company Number: US-ELI_LILLY_AND_COMPANY-US200711003020

PATIENT
  Sex: Male
  Weight: 254 kg

DRUGS (17)
  1. HUMALOG [Suspect]
     Dosage: 22 U, OTHER
     Route: 058
     Dates: start: 20060626
  2. HUMALOG [Suspect]
     Dosage: 46 U, DAILY (1/D)
     Route: 058
     Dates: start: 20060626
  3. LANTUS [Concomitant]
     Dosage: 75 IU, DAILY (1/D)
     Route: 058
  4. COREG [Concomitant]
     Dosage: 6.25 MG, 2/D
     Route: 048
  5. METHOTREXATE [Concomitant]
     Dosage: 2.5 MG, WEEKLY (1/W)
     Route: 048
  6. HUMIRA [Concomitant]
     Dosage: UNK, WEEKLY (1/W)
     Route: 050
  7. TIKOSYN [Concomitant]
     Dosage: 0.5 MG, 2/D
     Route: 048
  8. DIGOXIN [Concomitant]
     Dosage: 0.25 MG, DAILY (1/D)
     Route: 048
     Dates: start: 19980101
  9. MONOPRIL [Concomitant]
     Dosage: 40 MG, DAILY (1/D)
     Route: 048
     Dates: start: 19980101
  10. LIPITOR [Concomitant]
     Dosage: 10 MG, DAILY (1/D)
     Route: 048
     Dates: start: 19980101
  11. LASIX [Concomitant]
     Dosage: 120 MG, 2/D
     Route: 048
  12. POTASSIUM CHLORIDE [Concomitant]
     Route: 048
  13. ZANTAC [Concomitant]
     Dosage: 150 MG, 2/D
     Route: 048
     Dates: start: 19980101
  14. WARFARIN SODIUM [Concomitant]
     Dosage: 7.5 MG, DAILY (1/D)
     Route: 048
     Dates: start: 19980101
  15. CENTRUM SILVER [Concomitant]
     Dosage: UNK, DAILY (1/D)
     Route: 048
  16. CALCIUM [Concomitant]
     Dosage: UNK, DAILY (1/D)
     Route: 048
  17. NORVASC [Concomitant]
     Dosage: 5 MG, DAILY (1/D)
     Route: 048

REACTIONS (4)
  - CHEST DISCOMFORT [None]
  - DYSPNOEA [None]
  - HYPERHIDROSIS [None]
  - PYREXIA [None]
